FAERS Safety Report 8730410 (Version 4)
Quarter: 2012Q4

REPORT INFORMATION
  Report Type: 
  Country: JP (occurrence: JP)
  Receive Date: 20120817
  Receipt Date: 20121127
  Transmission Date: 20130627
  Serious: Yes (Death, Life-Threatening)
  Sender: FDA-Public Use
  Company Number: JP-ROCHE-1028733

PATIENT
  Age: 70 Year
  Sex: Male
  Weight: 60 kg

DRUGS (17)
  1. ACTEMRA [Suspect]
     Indication: CASTLEMAN^S DISEASE
     Route: 041
     Dates: start: 20110829, end: 20120723
  2. PREDNISOLONE [Concomitant]
     Indication: CASTLEMAN^S DISEASE
     Route: 048
     Dates: start: 20111029
  3. BAKTAR [Concomitant]
     Indication: PROPHYLAXIS
     Route: 048
     Dates: start: 20111101
  4. MAINTATE [Concomitant]
     Indication: HYPERTENSION
     Route: 048
     Dates: start: 20091225
  5. MICARDIS [Concomitant]
     Indication: HYPERTENSION
     Route: 048
  6. VILDAGLIPTIN [Concomitant]
     Indication: DIABETES MELLITUS
     Route: 048
     Dates: start: 20111020
  7. VILDAGLIPTIN [Concomitant]
     Indication: DIABETES MELLITUS
     Route: 048
  8. ALLEGRA [Concomitant]
     Indication: PRURITUS
     Route: 048
     Dates: start: 20111111
  9. PRECIPITATED CALCIUM CARBONATE [Concomitant]
     Indication: RENAL FAILURE CHRONIC
     Route: 048
     Dates: start: 20110328
  10. PRECIPITATED CALCIUM CARBONATE [Concomitant]
     Indication: RENAL FAILURE CHRONIC
     Route: 048
  11. LASIX [Concomitant]
     Indication: HYPERTENSION
     Route: 048
     Dates: start: 20110713
  12. LASIX [Concomitant]
     Indication: HYPERTENSION
     Route: 048
  13. THYRADIN-S [Concomitant]
     Indication: HYPOTHYROIDISM
     Route: 048
     Dates: start: 20110720
  14. THYRADIN-S [Concomitant]
     Indication: HYPOTHYROIDISM
     Route: 048
  15. ALESION [Concomitant]
     Indication: PRURITUS
     Route: 048
  16. RENAGEL [Concomitant]
     Indication: HYPERPHOSPHATAEMIA
     Route: 048
  17. REMITCH [Concomitant]
     Indication: PRURITUS
     Route: 048

REACTIONS (13)
  - Subdural haematoma [Fatal]
  - Subarachnoid haemorrhage [Fatal]
  - Ventricular fibrillation [Fatal]
  - Cardiac arrest [Fatal]
  - Erythema [Recovering/Resolving]
  - Fall [Fatal]
  - Pruritus [Not Recovered/Not Resolved]
  - Dermatitis allergic [Unknown]
  - Pyrexia [Unknown]
  - Staphylococcal infection [Unknown]
  - White blood cell count increased [Not Recovered/Not Resolved]
  - Infection [Unknown]
  - Arthralgia [Unknown]
